FAERS Safety Report 6492419-2 (Version None)
Quarter: 2009Q4

REPORT INFORMATION
  Report Type: 
  Country: None (occurrence: None)
  Receive Date: 20091214
  Receipt Date: 20091207
  Transmission Date: 20100525
  Serious: Yes (Hospitalization)
  Sender: FDA-Public Use
  Company Number: FR-KINGPHARMUSA00001-K200901521

PATIENT
  Age: 42 Year
  Sex: Male

DRUGS (5)
  1. ALTACE [Suspect]
     Dosage: 10 MG, UNK
     Route: 048
     Dates: start: 20070301
  2. TAHOR [Suspect]
     Indication: DYSLIPIDAEMIA
     Dosage: 40 MG, UNK
     Route: 048
     Dates: start: 20070101
  3. KARDEGIC [Concomitant]
  4. CARDENSIEL [Concomitant]
  5. APROVEL [Concomitant]

REACTIONS (8)
  - BRADYCARDIA [None]
  - HYPERLIPASAEMIA [None]
  - MULTI-ORGAN FAILURE [None]
  - PAIN [None]
  - PANCREATITIS NECROTISING [None]
  - POST PROCEDURAL HAEMORRHAGE [None]
  - SUPERINFECTION [None]
  - TENSION [None]
